FAERS Safety Report 8516904-4 (Version None)
Quarter: 2012Q3

REPORT INFORMATION
  Report Type: 
  Country: None (occurrence: None)
  Receive Date: 20120718
  Receipt Date: 20120710
  Transmission Date: 20120928
  Serious: Yes (Hospitalization)
  Sender: FDA-Public Use
  Company Number: CO-ELI_LILLY_AND_COMPANY-CO201207003605

PATIENT
  Age: 37 Year
  Sex: Female

DRUGS (7)
  1. ACETAMINOPHEN [Concomitant]
  2. OMEPRAZOLE [Concomitant]
  3. CALCITRIOL [Concomitant]
  4. MEGA CAL [Concomitant]
  5. FORTEO [Suspect]
     Dosage: 20 UG, QD
     Dates: start: 20120526
  6. CALCIUM VITAMIN D [Concomitant]
  7. FORTEO [Suspect]
     Indication: OSTEOPOROSIS
     Dosage: 20 UG, QD
     Dates: end: 20120525

REACTIONS (3)
  - INJECTION SITE HAEMATOMA [None]
  - HYPERHIDROSIS [None]
  - SURGERY [None]
